FAERS Safety Report 13574712 (Version 1)
Quarter: 2017Q2

REPORT INFORMATION
  Report Type: Spontaneous
  Country: US (occurrence: US)
  Receive Date: 20170523
  Receipt Date: 20170523
  Transmission Date: 20170830
  Serious: Yes (Hospitalization)
  Sender: FDA-Public Use
  Company Number: US-TEVA-770657USA

PATIENT
  Age: 33 Year
  Sex: Male

DRUGS (2)
  1. ISONIAZID. [Suspect]
     Active Substance: ISONIAZID
     Indication: LATENT TUBERCULOSIS
     Route: 065
  2. ISONIAZID. [Suspect]
     Active Substance: ISONIAZID
     Indication: INTENTIONAL OVERDOSE
     Route: 065

REACTIONS (9)
  - Lethargy [Unknown]
  - Toxicity to various agents [Unknown]
  - Coma [Recovered/Resolved]
  - Vomiting [Unknown]
  - Intentional overdose [Unknown]
  - Tachycardia [Unknown]
  - Metabolic acidosis [Recovered/Resolved]
  - Postictal state [Unknown]
  - Encephalopathy [Recovered/Resolved]
